FAERS Safety Report 17565301 (Version 2)
Quarter: 2020Q2

REPORT INFORMATION
  Report Type: Report from Study
  Country: CO (occurrence: CO)
  Receive Date: 20200320
  Receipt Date: 20200401
  Transmission Date: 20200713
  Serious: Yes (Hospitalization, Other)
  Sender: FDA-Public Use
  Company Number: PHHY2019CO111115

PATIENT
  Age: 12 Year
  Sex: Female
  Weight: 48 kg

DRUGS (6)
  1. REVOLADE [Suspect]
     Active Substance: ELTROMBOPAG
     Dosage: 25 MG, QD
     Route: 048
     Dates: end: 201810
  2. PREDNISOLONE. [Concomitant]
     Active Substance: PREDNISOLONE
     Indication: THROMBOCYTOPENIC PURPURA
     Dosage: 50 MG, QD
     Route: 048
  3. REVOLADE [Suspect]
     Active Substance: ELTROMBOPAG
     Dosage: 75 MG, QD
     Route: 048
  4. ACETAMINOPHEN. [Concomitant]
     Active Substance: ACETAMINOPHEN
     Indication: PAIN
     Dosage: 500 MG, PRN
     Route: 065
  5. REVOLADE [Suspect]
     Active Substance: ELTROMBOPAG
     Indication: IMMUNE THROMBOCYTOPENIA
     Dosage: 50 MG, QD (1 DF)
     Route: 048
     Dates: start: 20180620
  6. REVOLADE [Suspect]
     Active Substance: ELTROMBOPAG
     Dosage: 50 MG, QD
     Route: 048
     Dates: start: 201810

REACTIONS (23)
  - Haemorrhage [Unknown]
  - Nausea [Unknown]
  - Drug intolerance [Unknown]
  - Headache [Unknown]
  - Platelet count decreased [Recovering/Resolving]
  - Hip fracture [Recovering/Resolving]
  - Head injury [Unknown]
  - Product dose omission [Unknown]
  - General physical health deterioration [Unknown]
  - Ankle fracture [Recovering/Resolving]
  - Vomiting [Recovering/Resolving]
  - Decreased appetite [Recovering/Resolving]
  - Weight decreased [Unknown]
  - Therapy non-responder [Unknown]
  - Pyrexia [Recovering/Resolving]
  - Dysuria [Recovering/Resolving]
  - Malaise [Unknown]
  - Femur fracture [Unknown]
  - Lower limb fracture [Unknown]
  - Road traffic accident [Recovering/Resolving]
  - Cystitis [Unknown]
  - Pain in extremity [Unknown]
  - Petechiae [Unknown]

NARRATIVE: CASE EVENT DATE: 20190501
